FAERS Safety Report 8519082 (Version 5)
Quarter: 2015Q4

REPORT INFORMATION
  Report Type: Spontaneous
  Country: US (occurrence: US)
  Receive Date: 20120418
  Receipt Date: 20151119
  Transmission Date: 20160305
  Serious: Yes (Hospitalization)
  Sender: FDA-Public Use
  Company Number: US-BAYER-2012-034707

PATIENT
  Age: 33 Year
  Sex: Female
  Weight: 49.89 kg

DRUGS (2)
  1. ELITEK [Concomitant]
     Active Substance: RASBURICASE
     Indication: NUTRITIONAL SUPPLEMENTATION
     Dosage: UNK
     Dates: start: 20101113
  2. YASMIN [Suspect]
     Active Substance: DROSPIRENONE\ETHINYL ESTRADIOL
     Dosage: UNK
     Dates: start: 2000, end: 2009

REACTIONS (4)
  - Cerebral artery occlusion [None]
  - Cerebrovascular accident [None]
  - Hemiparesis [None]
  - Depression [None]

NARRATIVE: CASE EVENT DATE: 20100913
